FAERS Safety Report 8590133-0 (Version None)
Quarter: 2012Q3

REPORT INFORMATION
  Report Type: 
  Country: None (occurrence: None)
  Receive Date: 20120813
  Receipt Date: 20120809
  Transmission Date: 20120928
  Serious: Yes (Other)
  Sender: FDA-Public Use
  Company Number: IE-ROCHE-1100024

PATIENT
  Sex: Female
  Weight: 56 kg

DRUGS (8)
  1. ACTEMRA [Suspect]
     Dates: start: 20120712
  2. ACTEMRA [Suspect]
     Dates: start: 20120531
  3. ACTEMRA [Suspect]
     Dates: start: 20120628
  4. ACTEMRA [Suspect]
     Dates: start: 20120726
  5. HYDROCORTISONE [Concomitant]
     Indication: PREMEDICATION
     Route: 042
  6. ACETAMINOPHEN [Concomitant]
     Route: 048
  7. ACTEMRA [Suspect]
     Indication: JUVENILE ARTHRITIS
  8. ACETAMINOPHEN [Concomitant]
     Indication: PREMEDICATION
     Route: 042
     Dates: end: 20120726

REACTIONS (2)
  - ANXIETY [None]
  - PALPITATIONS [None]
